FAERS Safety Report 6086605-3 (Version None)
Quarter: 2009Q1

REPORT INFORMATION
  Report Type: 
  Country: None (occurrence: None)
  Receive Date: 20090223
  Receipt Date: 20090210
  Transmission Date: 20090719
  Serious: Yes (Hospitalization)
  Sender: FDA-Public Use
  Company Number: FR-PFIZER INC-2009161545

PATIENT

DRUGS (8)
  1. SOLU-MEDROL [Suspect]
     Indication: LUNG DISORDER
     Dosage: 20 MG, 3X/DAY
     Route: 055
     Dates: start: 20090116, end: 20090121
  2. SOLU-MEDROL [Suspect]
     Indication: BRONCHITIS
  3. CELECTOL [Concomitant]
     Dosage: UNK
     Route: 048
  4. REPAGLINIDE [Concomitant]
     Dosage: UNK
     Route: 048
  5. REPAGLINIDE [Concomitant]
     Dosage: UNK
  6. ZANIDIP [Concomitant]
     Dosage: UNK
  7. LANTUS [Concomitant]
     Dosage: UNK
  8. ATORVASTATIN CALCIUM [Concomitant]
     Dosage: UNK
     Route: 048

REACTIONS (3)
  - HYPOGLYCAEMIA [None]
  - INCORRECT ROUTE OF DRUG ADMINISTRATION [None]
  - LOSS OF CONSCIOUSNESS [None]
